FAERS Safety Report 6217295-4 (Version None)
Quarter: 2009Q2

REPORT INFORMATION
  Report Type: 
  Country: None (occurrence: None)
  Receive Date: 20090608
  Receipt Date: 20090413
  Transmission Date: 20091009
  Serious: Yes (Death)
  Sender: FDA-Public Use
  Company Number: JP-PFIZER INC-2009181510

PATIENT
  Age: 77 Year

DRUGS (7)
  1. RIFABUTIN [Suspect]
     Indication: TUBERCULOSIS
     Dosage: 300 MG, 1X/DAY
     Route: 048
     Dates: start: 20081105, end: 20081213
  2. AVELOX [Concomitant]
     Route: 048
     Dates: end: 20081213
  3. KLARICID [Concomitant]
     Route: 048
     Dates: end: 20081213
  4. ALL OTHER THERAPEUTIC PRODUCTS [Concomitant]
     Route: 042
  5. HUMULIN R [Concomitant]
     Route: 042
  6. LAMISIL [Concomitant]
     Route: 062
  7. SENNARIDE [Concomitant]
     Dosage: UNK
     Route: 048
     Dates: start: 20081109, end: 20081110

REACTIONS (1)
  - PULMONARY TUBERCULOSIS [None]
